FAERS Safety Report 13236905 (Version 1)
Quarter: 2017Q1

REPORT INFORMATION
  Report Type: Spontaneous
  Country: None (occurrence: US)
  Receive Date: 20170215
  Receipt Date: 20170215
  Transmission Date: 20170428
  Serious: No
  Sender: FDA-Public Use
  Company Number: US-LANTHEUS-LMI-2016-00071

PATIENT
  Age: 55 Year
  Sex: Female
  Weight: 97 kg

DRUGS (2)
  1. DEFINITY [Suspect]
     Active Substance: PERFLUTREN
     Dosage: 1.7 ML DEFINITY DILUTED IN 8.3 UNKNOWN DILUENT
     Route: 040
     Dates: start: 20160215, end: 20160215
  2. DEFINITY [Suspect]
     Active Substance: PERFLUTREN
     Indication: STRESS ECHOCARDIOGRAM
     Dosage: 1.7 ML DEFINITY DILUTED IN 8.3 UNKNOWN DILUENT
     Route: 040
     Dates: start: 20160215, end: 20160215

REACTIONS (1)
  - Muscle spasms [Recovered/Resolved]

NARRATIVE: CASE EVENT DATE: 20160215
